FAERS Safety Report 10779137 (Version 1)
Quarter: 2015Q1

REPORT INFORMATION
  Report Type: Spontaneous
  Country: US (occurrence: None)
  Receive Date: 20150206
  Receipt Date: 20150206
  Transmission Date: 20150721
  Serious: No
  Sender: FDA-Public Use
  Company Number: None

PATIENT

DRUGS (3)
  1. DEXAMETHASONE. [Suspect]
     Active Substance: DEXAMETHASONE
     Dosage: DOSAGE FORM: INJECTABLE, ADM ROUTE: INJECTION, STRENGTH: 10 MG/ML, TYPE: VIAL, SIZE: 1 ML
  2. DEXMEDETOMIDINE [Suspect]
     Active Substance: DEXMEDETOMIDINE
     Dosage: DOSAGE FORM: INJECTABLE, ADM ROUTE: INJECTION, STRENGTH: 200 MCG/2 ML, TYPE: SINGLE DOSE VIAL, SIZE: 2 ML?
  3. DEXAMETHASONE. [Suspect]
     Active Substance: DEXAMETHASONE
     Dosage: DOSAGE FORM: INJECTABLE, ADM ROUTE: FOR IV OR IM USE, STRENGTH: 10 MG/ML, TYPE: SINGLE DOSE VIAL, SIZE: 1 ML

REACTIONS (1)
  - Intercepted drug dispensing error [None]
